FAERS Safety Report 7325601-2 (Version None)
Quarter: 2011Q1

REPORT INFORMATION
  Report Type: 
  Country: None (occurrence: None)
  Receive Date: 20110302
  Receipt Date: 20110224
  Transmission Date: 20110831
  Serious: Yes (Life-Threatening, Hospitalization, Congenital Anomaly, Other)
  Sender: FDA-Public Use
  Company Number: US-ELI_LILLY_AND_COMPANY-US201102007108

PATIENT
  Weight: 0.907 kg

DRUGS (7)
  1. LEVOTHYROXINE [Concomitant]
     Dosage: 150 UG, DAILY (1/D)
     Route: 064
  2. VANCOMYCIN [Concomitant]
     Dosage: UNK, UNK
     Route: 064
  3. HUMALOG [Concomitant]
     Dosage: 30 U, EACH EVENING
     Route: 064
  4. HUMALOG [Concomitant]
     Dosage: 10 U, 3/D
     Route: 064
  5. BYETTA [Suspect]
     Indication: TYPE 2 DIABETES MELLITUS
     Dosage: UNK, UNK
     Route: 064
  6. KEFLEX [Concomitant]
     Dosage: 250 MG, DAILY (1/D)
     Route: 064
  7. CLINDAMYCIN [Concomitant]
     Route: 064

REACTIONS (9)
  - RIB DEFORMITY [None]
  - OESOPHAGEAL ATRESIA [None]
  - PREMATURE BABY [None]
  - HEMIVERTEBRA [None]
  - NEONATAL RESPIRATORY FAILURE [None]
  - TRACHEO-OESOPHAGEAL FISTULA [None]
  - SMALL FOR DATES BABY [None]
  - SPINE MALFORMATION [None]
  - DRUG EXPOSURE DURING PREGNANCY [None]
